FAERS Safety Report 9415860 (Version 4)
Quarter: 2014Q1

REPORT INFORMATION
  Report Type: Report from Study
  Country: IT (occurrence: IT)
  Receive Date: 20130724
  Receipt Date: 20140226
  Transmission Date: 20141002
  Serious: Yes (Hospitalization)
  Sender: FDA-Public Use
  Company Number: IT-MERCK-1307ITA010461

PATIENT
  Age: 73 Year
  Sex: Female
  Weight: 57 kg

DRUGS (11)
  1. BOCEPREVIR [Suspect]
     Indication: HEPATIC CIRRHOSIS
     Dosage: 2400 MG, QD
     Route: 048
     Dates: start: 20130508, end: 20130712
  2. BOCEPREVIR [Suspect]
     Indication: HEPATITIS C
  3. RIBAVIRIN [Suspect]
     Indication: HEPATIC CIRRHOSIS
     Dosage: 800 MG, QD
     Route: 048
     Dates: start: 20130408, end: 20130712
  4. RIBAVIRIN [Suspect]
     Indication: HEPATITIS C
  5. PEGINTRON [Suspect]
     Indication: HEPATIC CIRRHOSIS
     Dosage: 80 MICROGRAM, QW, PEN
     Route: 058
     Dates: start: 20130408, end: 20130712
  6. PEGINTRON [Suspect]
     Indication: HEPATITIS C
  7. TELMISARTAN [Concomitant]
     Indication: HYPERTENSION
     Dosage: 5 MG, QD
     Route: 048
     Dates: start: 2000, end: 20130731
  8. INSULIN ASPART [Concomitant]
     Indication: DIABETES MELLITUS
     Dosage: DOSE DEPEND ON GLUCOSE LEVEL, TID
     Route: 058
     Dates: start: 20111010
  9. CYANOCOBALAMIN [Concomitant]
     Indication: ANAEMIA PROPHYLAXIS
     Dosage: 1000 MCG, QW
     Route: 048
     Dates: start: 20130408
  10. FOLIC ACID [Concomitant]
     Indication: ANAEMIA PROPHYLAXIS
     Dosage: 5 MG, QD
     Route: 048
     Dates: start: 20130408
  11. VITAMIN D (UNSPECIFIED) [Concomitant]
     Indication: PROPHYLAXIS
     Dosage: 100.000 UI/ML, MONTHLY
     Route: 048
     Dates: start: 20130311

REACTIONS (4)
  - Hyperpyrexia [Recovered/Resolved]
  - Confusional state [Recovered/Resolved]
  - Anaemia [Recovered/Resolved]
  - Vomiting [Recovered/Resolved]
